FAERS Safety Report 13438140 (Version 1)
Quarter: 2017Q2

REPORT INFORMATION
  Report Type: Report from Study
  Country: None (occurrence: CH)
  Receive Date: 20170412
  Receipt Date: 20170412
  Transmission Date: 20170830
  Serious: Yes (Hospitalization)
  Sender: FDA-Public Use
  Company Number: CH-ABBVIE-17P-151-1940349-00

PATIENT
  Age: 83 Year
  Sex: Female

DRUGS (1)
  1. DUODOPA [Suspect]
     Active Substance: CARBIDOPA\LEVODOPA
     Indication: PARKINSON^S DISEASE
     Dosage: MD: 7.0ML, CR: 2.7ML/H, ED: 2.5ML-16 HR THERAPY
     Route: 050
     Dates: start: 20150803

REACTIONS (2)
  - General physical health deterioration [Recovering/Resolving]
  - Device loosening [Recovered/Resolved]

NARRATIVE: CASE EVENT DATE: 20170405
